FAERS Safety Report 18061274 (Version 1)
Quarter: 2020Q3

REPORT INFORMATION
  Report Type: Spontaneous
  Country: US (occurrence: US)
  Receive Date: 20200723
  Receipt Date: 20200723
  Transmission Date: 20201103
  Serious: Yes (Hospitalization)
  Sender: FDA-Public Use
  Company Number: US-PURDUE-USA-2020-0158793

PATIENT
  Sex: Female

DRUGS (1)
  1. OXYCONTIN [Suspect]
     Active Substance: OXYCODONE HYDROCHLORIDE
     Indication: ARACHNOIDITIS
     Dosage: UNK, DAILY
     Route: 048
     Dates: start: 2000

REACTIONS (4)
  - Suicide attempt [Unknown]
  - Mental disorder [Unknown]
  - Overdose [Unknown]
  - Major depression [Unknown]
